FAERS Safety Report 10583585 (Version 1)
Quarter: 2014Q4

REPORT INFORMATION
  Report Type: Spontaneous
  Country: US (occurrence: None)
  Receive Date: 20141112
  Receipt Date: 20141112
  Transmission Date: 20150529
  Serious: Yes (Hospitalization)
  Sender: FDA-Public Use
  Company Number: 201411007

PATIENT
  Age: 43 Year
  Sex: Male

DRUGS (3)
  1. TESTIM [Suspect]
     Active Substance: TESTOSTERONE
     Indication: BLOOD TESTOSTERONE DECREASED
     Route: 062
     Dates: start: 201109, end: 201202
  2. ANDROGEL [Suspect]
     Active Substance: TESTOSTERONE
     Indication: BLOOD TESTOSTERONE DECREASED
     Dates: start: 201206, end: 20121104
  3. TESTIM [Suspect]
     Active Substance: TESTOSTERONE
     Indication: HYPOGONADISM
     Route: 062
     Dates: start: 201109, end: 201202

REACTIONS (6)
  - Economic problem [None]
  - Unevaluable event [None]
  - Cerebrovascular accident [None]
  - Transient ischaemic attack [None]
  - Anhedonia [None]
  - Multiple injuries [None]

NARRATIVE: CASE EVENT DATE: 20121104
